FAERS Safety Report 7564946-8 (Version None)
Quarter: 2011Q2

REPORT INFORMATION
  Report Type: 
  Country: None (occurrence: None)
  Receive Date: 20110622
  Receipt Date: 20110509
  Transmission Date: 20111010
  Serious: Yes (Other)
  Sender: FDA-Public Use
  Company Number: US-MYLANLABS-2011S1004159

PATIENT
  Age: 39 Year
  Sex: Male

DRUGS (7)
  1. CLOZAPINE [Suspect]
     Route: 048
     Dates: end: 20110222
  2. INVEGA [Concomitant]
  3. CLONAZEPAM [Concomitant]
  4. DEPAKOTE [Concomitant]
  5. COLACE [Concomitant]
  6. LIPITOR [Concomitant]
  7. SYNTHROID [Concomitant]

REACTIONS (1)
  - GRANULOCYTOPENIA [None]
